FAERS Safety Report 9770257 (Version 3)
Quarter: 2014Q1

REPORT INFORMATION
  Report Type: Spontaneous
  Country: NO (occurrence: NO)
  Receive Date: 20131218
  Receipt Date: 20140307
  Transmission Date: 20141002
  Serious: Yes (Death, Hospitalization)
  Sender: FDA-Public Use
  Company Number: NO-B.I. PHARMACEUTICALS,INC./RIDGEFIELD-2013-BI-42440NO

PATIENT
  Sex: Male

DRUGS (8)
  1. PRADAXA [Suspect]
     Indication: ATRIAL FIBRILLATION
     Dosage: 220 MG
     Route: 048
     Dates: start: 201210, end: 20131122
  2. BISOPROLOL [Concomitant]
     Indication: ATRIAL FIBRILLATION
     Dosage: 2.5 MG
     Route: 048
  3. BRONKYL / ACETYLCYSTEINE [Concomitant]
     Dosage: 600 MG
     Route: 048
  4. SPERSADEX / DEXAMETHASONE [Concomitant]
     Dosage: ROUTE: OPHTHALMIC
     Route: 047
  5. AZOPT / BRINZOLAMIDE [Concomitant]
     Dosage: ROUTE: OPHTHALMIC
     Route: 047
  6. SOMAC / PANTOPRAZOLE [Concomitant]
     Dosage: 20 MG
     Route: 048
  7. TAMSULOSIN [Concomitant]
     Indication: BENIGN PROSTATIC HYPERPLASIA
     Dosage: 0.4 MG
     Route: 048
  8. XALATAN / LATANOPROST [Concomitant]
     Dosage: ROUTE: OPHTHALMIC
     Route: 047

REACTIONS (3)
  - Haemorrhage subcutaneous [Fatal]
  - Mucosal haemorrhage [Fatal]
  - Haemorrhagic anaemia [Fatal]
